FAERS Safety Report 6348167-2 (Version None)
Quarter: 2009Q3

REPORT INFORMATION
  Report Type: 
  Country: None (occurrence: None)
  Receive Date: 20090908
  Receipt Date: 20090827
  Transmission Date: 20100115
  Serious: Yes (Hospitalization)
  Sender: FDA-Public Use
  Company Number: GXKR2009SG09638

PATIENT
  Age: 59 Year
  Sex: Male

DRUGS (4)
  1. HEPARIN [Suspect]
     Indication: ACUTE MYOCARDIAL INFARCTION
     Dosage: LOADING DOSE: 5000 UNITS; INTRAVENOUS
     Route: 042
  2. ACETYLSALICYLIC ACID SRT [Suspect]
     Indication: ACUTE MYOCARDIAL INFARCTION
     Dosage: LOADING DOSE: 300 MG, ORAL
     Route: 048
  3. CLOPIDOGREL [Suspect]
     Dosage: LOADING DOSE: 300 MG, ORAL
     Route: 048
  4. ALTEPLASE (ALTEPLASE) [Suspect]
     Indication: ACUTE MYOCARDIAL INFARCTION
     Dosage: 15 MG, IV BOLUS; 50 MG OVER 30 MIN, IV BOLUS, 35 MG OVER 60 MIN, IV BOLUS
     Route: 040

REACTIONS (4)
  - GOITRE [None]
  - PAIN [None]
  - THYROID HAEMORRHAGE [None]
  - TRACHEAL DISORDER [None]
